FAERS Safety Report 8957287 (Version 2)
Quarter: 2013Q1

REPORT INFORMATION
  Report Type: Spontaneous
  Country: US (occurrence: US)
  Receive Date: 20121210
  Receipt Date: 20130308
  Transmission Date: 20140127
  Serious: No
  Sender: FDA-Public Use
  Company Number: US-ASTELLAS-2012US011229

PATIENT
  Sex: Male

DRUGS (1)
  1. XTANDI [Suspect]
     Indication: PROSTATE CANCER
     Dosage: 160 MG, UID/QD
     Route: 048
     Dates: start: 20121101, end: 20121113

REACTIONS (7)
  - Insomnia [Unknown]
  - Blood urine present [Unknown]
  - Nasopharyngitis [Unknown]
  - Fatigue [Unknown]
  - Arthralgia [Unknown]
  - Myalgia [Unknown]
  - Back pain [Unknown]
